FAERS Safety Report 10651519 (Version 1)
Quarter: 2014Q4

REPORT INFORMATION
  Report Type: Spontaneous
  Country: US (occurrence: None)
  Receive Date: 20141212
  Receipt Date: 20141212
  Transmission Date: 20150529
  Serious: No
  Sender: FDA-Public Use
  Company Number: None

PATIENT
  Age: 71 Year
  Sex: Female

DRUGS (1)
  1. IMBRUVICA [Suspect]
     Active Substance: IBRUTINIB
     Indication: LYMPHOMA
     Dosage: TAKE 4 DAILY
     Route: 048
     Dates: start: 20141105, end: 20141202

REACTIONS (2)
  - Internal haemorrhage [None]
  - Cardiac disorder [None]

NARRATIVE: CASE EVENT DATE: 20141210
